FAERS Safety Report 9495707 (Version 2)
Quarter: 2013Q3

REPORT INFORMATION
  Report Type: Report from Study
  Country: US (occurrence: US)
  Receive Date: 20130903
  Receipt Date: 20130903
  Transmission Date: 20140515
  Serious: Yes (Other)
  Sender: FDA-Public Use
  Company Number: US-ACTELION-A-NJ2013-87051

PATIENT
  Age: 48 Year
  Sex: Female

DRUGS (5)
  1. TRACLEER [Suspect]
     Indication: PULMONARY ARTERIAL HYPERTENSION
     Dosage: UNK
     Route: 048
  2. TYVASO [Concomitant]
  3. ASA [Concomitant]
     Dosage: 81 MG, UNK
  4. LASIX [Concomitant]
     Dosage: 20 MG, UNK
  5. PLAVIX [Concomitant]
     Dosage: 75 MG, UNK

REACTIONS (3)
  - Bronchiectasis [Recovered/Resolved]
  - Pneumonia [Recovered/Resolved]
  - Blood alkaline phosphatase increased [Recovered/Resolved]
